FAERS Safety Report 21842239 (Version 1)
Quarter: 2023Q1

REPORT INFORMATION
  Report Type: Spontaneous
  Country: US (occurrence: US)
  Receive Date: 20230110
  Receipt Date: 20230110
  Transmission Date: 20230417
  Serious: Yes (Hospitalization)
  Sender: FDA-Public Use
  Company Number: US-drreddys-LIT/USA/23/0159408

PATIENT
  Age: 41 Year
  Sex: Male

DRUGS (1)
  1. COLCHICINE [Suspect]
     Active Substance: COLCHICINE
     Indication: Pericardial effusion

REACTIONS (3)
  - Epstein-Barr virus infection [Unknown]
  - Pericarditis [Unknown]
  - Drug ineffective for unapproved indication [Unknown]
